FAERS Safety Report 17463310 (Version 1)
Quarter: 2020Q1

REPORT INFORMATION
  Report Type: Spontaneous
  Country: US (occurrence: US)
  Receive Date: 20200226
  Receipt Date: 20200226
  Transmission Date: 20200409
  Serious: Yes (Death, Hospitalization, Other)
  Sender: FDA-Public Use
  Company Number: US-IBIGEN-2020.08325

PATIENT
  Age: 65 Year
  Sex: Male

DRUGS (10)
  1. METRONIDAZOLE. [Concomitant]
     Active Substance: METRONIDAZOLE
     Indication: EVIDENCE BASED TREATMENT
     Dosage: FROM DAY 24 TO DAY 27
  2. CEFEPIME [Concomitant]
     Active Substance: CEFEPIME HYDROCHLORIDE
     Indication: EVIDENCE BASED TREATMENT
     Dosage: FROM DAY 24 TO DAY 27
  3. LEVOFLOXACIN. [Concomitant]
     Active Substance: LEVOFLOXACIN
     Indication: ABDOMINAL INFECTION
  4. PIPERACILLIN/TAZOBACTAM [Suspect]
     Active Substance: PIPERACILLIN SODIUM\TAZOBACTAM SODIUM
     Indication: ACHROMOBACTER INFECTION
     Dosage: FROM DAY 27
  5. VANCOMYCIN [Concomitant]
     Active Substance: VANCOMYCIN
     Indication: BACTERIAL INFECTION
     Dosage: FROM DAY 28 TO DAY 31
  6. LINEZOLID. [Concomitant]
     Active Substance: LINEZOLID
     Indication: INFECTION
  7. PIPERACILLIN/TAZOBACTAM [Suspect]
     Active Substance: PIPERACILLIN SODIUM\TAZOBACTAM SODIUM
     Indication: EVIDENCE BASED TREATMENT
     Dosage: FROM DAY 22 TO DAY 23
  8. MEROPENEM. [Concomitant]
     Active Substance: MEROPENEM
     Indication: EVIDENCE BASED TREATMENT
     Dosage: FROM DAY 24 TO DAY 27
  9. VANCOMYCIN [Concomitant]
     Active Substance: VANCOMYCIN
     Indication: EVIDENCE BASED TREATMENT
     Dosage: FROM DAY 22 TO DAY 27
  10. MEROPENEM. [Concomitant]
     Active Substance: MEROPENEM
     Indication: BACTERIAL INFECTION
     Dosage: FROM DAY 28 TO DAY 31

REACTIONS (7)
  - Drug ineffective [Fatal]
  - Peritonitis [Fatal]
  - Condition aggravated [Fatal]
  - Acute kidney injury [Fatal]
  - Hypotension [Fatal]
  - Respiratory failure [Fatal]
  - Achromobacter infection [Fatal]
